FAERS Safety Report 4596057-8 (Version None)
Quarter: 2005Q1

REPORT INFORMATION
  Report Type: 
  Country: None (occurrence: None)
  Receive Date: 20050225
  Receipt Date: 20050209
  Transmission Date: 20050727
  Serious: No
  Sender: FDA-Public Use
  Company Number: 2005AP01164

PATIENT
  Age: 37 Year
  Sex: Male

DRUGS (8)
  1. CARBOCAIN [Suspect]
     Indication: EPIDURAL ANAESTHESIA
     Dosage: 4 ML/HR ED
     Route: 008
  2. EPHEDRINE HYDROCHLORIDE [Suspect]
     Indication: BLOOD PRESSURE DECREASED
     Dosage: 8 MG DAILY
  3. PRAZOSIN HYDROCHLORIDE [Concomitant]
  4. CARDENALIN [Concomitant]
  5. MIDAZOLAM [Concomitant]
  6. SEVOFLURANE [Concomitant]
  7. VECURONIUM BROMIDE [Concomitant]
  8. NOREPINEPHRINE [Concomitant]

REACTIONS (9)
  - ANAESTHETIC COMPLICATION [None]
  - ARTERIOSPASM CORONARY [None]
  - BLOOD PRESSURE INCREASED [None]
  - DRUG INEFFECTIVE [None]
  - ELECTROCARDIOGRAM ST SEGMENT ELEVATION [None]
  - HAEMODYNAMIC INSTABILITY [None]
  - NERVE BLOCK [None]
  - PROCEDURAL COMPLICATION [None]
  - PROCEDURAL HYPOTENSION [None]
